FAERS Safety Report 11595296 (Version 3)
Quarter: 2015Q4

REPORT INFORMATION
  Report Type: Spontaneous
  Country: IT (occurrence: IT)
  Receive Date: 20151006
  Receipt Date: 20151016
  Transmission Date: 20160304
  Serious: Yes (Other)
  Sender: FDA-Public Use
  Company Number: IT-ROCHE-1642157

PATIENT
  Age: 76 Year
  Sex: Female
  Weight: 52 kg

DRUGS (4)
  1. OXALIPLATIN. [Interacting]
     Active Substance: OXALIPLATIN
     Indication: ADENOCARCINOMA OF COLON
     Dosage: 5MG/ML-1 X 40 ML GLASS VIAL
     Route: 042
     Dates: start: 20140819, end: 20140911
  2. 5-FLUOROURACIL [Interacting]
     Active Substance: FLUOROURACIL
     Indication: ADENOCARCINOMA OF COLON
     Dosage: FIRST CYCLE, 5 G/100 ML SOLUTION FOR INFUSION 1 X 100 ML VIAL
     Route: 042
     Dates: start: 20140819
  3. 5-FLUOROURACIL [Interacting]
     Active Substance: FLUOROURACIL
     Dosage: SECOND CYCLE
     Route: 042
     Dates: end: 20140911
  4. AVASTIN [Suspect]
     Active Substance: BEVACIZUMAB
     Indication: ADENOCARCINOMA OF COLON
     Dosage: 1 X 400 MG VIAL OF CONCENTRATE FOR SOLUTION FOR INJECTION
     Route: 042
     Dates: start: 20140911, end: 20140911

REACTIONS (2)
  - Electrocardiogram ST segment depression [Unknown]
  - Drug interaction [Unknown]

NARRATIVE: CASE EVENT DATE: 20140919
